FAERS Safety Report 4763221-4 (Version None)
Quarter: 2005Q3

REPORT INFORMATION
  Report Type: 
  Country: None (occurrence: None)
  Receive Date: 20050902
  Receipt Date: 20050822
  Transmission Date: 20060218
  Serious: Yes (Hospitalization)
  Sender: FDA-Public Use
  Company Number: 2005BI012553

PATIENT
  Sex: Female

DRUGS (1)
  1. AVONEX [Suspect]
     Indication: MULTIPLE SCLEROSIS
     Dosage: 30 UG;QW;IM
     Route: 030

REACTIONS (9)
  - CONVERSION DISORDER [None]
  - DEPRESSION [None]
  - FATIGUE [None]
  - HYPERAESTHESIA [None]
  - INFLUENZA [None]
  - MULTIPLE SCLEROSIS RELAPSE [None]
  - RESPIRATORY ARREST [None]
  - SOMATOFORM DISORDER [None]
  - THROMBOSIS [None]
